FAERS Safety Report 24768790 (Version 1)
Quarter: 2024Q4

REPORT INFORMATION
  Report Type: Spontaneous
  Country: US (occurrence: US)
  Receive Date: 20241224
  Receipt Date: 20241224
  Transmission Date: 20250115
  Serious: No
  Sender: CHIESI
  Company Number: US-CHIESI-2024CHF07040

PATIENT
  Sex: Male

DRUGS (1)
  1. CUROSURF [Suspect]
     Active Substance: PORACTANT ALFA
     Indication: Neonatal respiratory distress syndrome
     Dosage: 1 DOSAGE FORM, (1X)

REACTIONS (1)
  - Off label use [Recovered/Resolved]
